FAERS Safety Report 13175520 (Version 1)
Quarter: 2017Q1

REPORT INFORMATION
  Report Type: Spontaneous
  Country: JP (occurrence: JP)
  Receive Date: 20170201
  Receipt Date: 20170201
  Transmission Date: 20170428
  Serious: Yes (Other)
  Sender: FDA-Public Use
  Company Number: JP-PFIZER INC-2017040045

PATIENT
  Sex: Male

DRUGS (2)
  1. ZOSYN [Suspect]
     Active Substance: PIPERACILLIN SODIUM\TAZOBACTAM SODIUM
     Indication: PNEUMONIA
     Dosage: 13.5 G, UNK
     Route: 042
     Dates: start: 20161231, end: 20170104
  2. INAVIR [Concomitant]
     Active Substance: LANINAMIVIR
     Dosage: 40 MG, 1X/DAY
     Route: 055
     Dates: start: 20161231, end: 20161231

REACTIONS (2)
  - Pseudomembranous colitis [Recovering/Resolving]
  - Drug-induced liver injury [Recovering/Resolving]
